FAERS Safety Report 5965518-9 (Version None)
Quarter: 2008Q4

REPORT INFORMATION
  Report Type: 
  Country: None (occurrence: None)
  Receive Date: 20081125
  Receipt Date: 20081119
  Transmission Date: 20090506
  Serious: Yes (Other)
  Sender: FDA-Public Use
  Company Number: AU-ASTRAZENECA-2008AP08821

PATIENT
  Age: 20320 Day
  Sex: Female
  Weight: 60 kg

DRUGS (5)
  1. NEXIUM [Suspect]
     Indication: HELICOBACTER INFECTION
     Route: 048
  2. AMOXIL [Suspect]
     Indication: HELICOBACTER INFECTION
     Route: 048
  3. KLACID [Suspect]
     Indication: HELICOBACTER INFECTION
     Route: 048
  4. ADALAT [Concomitant]
     Indication: HYPERTENSION
  5. MOVICOL [Concomitant]

REACTIONS (2)
  - BLISTER [None]
  - BURNING SENSATION [None]
